FAERS Safety Report 5383191-8 (Version None)
Quarter: 2007Q3

REPORT INFORMATION
  Report Type: 
  Country: None (occurrence: None)
  Receive Date: 20070710
  Receipt Date: 20070629
  Transmission Date: 20080115
  Serious: Yes (Hospitalization)
  Sender: FDA-Public Use
  Company Number: JP-JNJFOC-20061205125

PATIENT
  Sex: Female
  Weight: 68 kg

DRUGS (13)
  1. REMICADE [Suspect]
     Route: 042
  2. REMICADE [Suspect]
     Route: 042
  3. REMICADE [Suspect]
     Route: 042
  4. REMICADE [Suspect]
     Route: 042
  5. REMICADE [Suspect]
     Route: 042
  6. REMICADE [Suspect]
     Route: 042
  7. REMICADE [Suspect]
     Route: 042
  8. REMICADE [Suspect]
     Indication: RHEUMATOID ARTHRITIS
     Route: 042
  9. GASTER [Concomitant]
     Indication: GASTRITIS PROPHYLAXIS
     Route: 048
  10. METHOTREXATE [Concomitant]
     Route: 048
  11. METHOTREXATE [Concomitant]
     Indication: RHEUMATOID ARTHRITIS
     Route: 048
  12. ISONIAZID [Concomitant]
     Indication: ANTIBIOTIC PROPHYLAXIS
     Route: 048
  13. LIPITOR [Concomitant]
     Indication: HYPERLIPIDAEMIA
     Route: 048

REACTIONS (2)
  - AUTOIMMUNE HEPATITIS [None]
  - DUODENAL ULCER [None]
